FAERS Safety Report 5319397-3 (Version None)
Quarter: 2007Q2

REPORT INFORMATION
  Report Type: 
  Country: None (occurrence: None)
  Receive Date: 20070508
  Receipt Date: 20070425
  Transmission Date: 20071010
  Serious: Yes (Death, Life-Threatening, Hospitalization)
  Sender: FDA-Public Use
  Company Number: GB-GENENTECH-238788

PATIENT
  Age: 77 Year
  Sex: Male

DRUGS (2)
  1. AVASTIN [Suspect]
     Indication: COLORECTAL CANCER
     Dosage: UNK, UNK
  2. IRINOTECAN HCL [Suspect]
     Indication: COLORECTAL CANCER
     Dosage: UNK, UNK

REACTIONS (7)
  - DIARRHOEA [None]
  - PERIPHERAL CIRCULATORY FAILURE [None]
  - PNEUMOCYSTIS JIROVECI INFECTION [None]
  - RESPIRATORY DISORDER [None]
  - TUMOUR PERFORATION [None]
  - ULCER [None]
  - VOMITING [None]
